FAERS Safety Report 13662177 (Version 5)
Quarter: 2017Q3

REPORT INFORMATION
  Report Type: Spontaneous
  Country: KR (occurrence: KR)
  Receive Date: 20170616
  Receipt Date: 20170918
  Transmission Date: 20171127
  Serious: Yes (Other)
  Sender: FDA-Public Use
  Company Number: KR-009507513-1702KOR007333

PATIENT
  Age: 67 Year
  Sex: Male
  Weight: 64 kg

DRUGS (37)
  1. EMEND (FOSAPREPITANT DIMEGLUMINE) [Suspect]
     Active Substance: FOSAPREPITANT DIMEGLUMINE
     Dosage: 150 MG, ONCE
     Route: 042
     Dates: start: 20161021, end: 20161021
  2. ALIMTA [Concomitant]
     Active Substance: PEMETREXED DISODIUM
     Dosage: 860 MG, ONCE (CYCLE 4)
     Route: 042
     Dates: start: 20161021, end: 20161021
  3. DEXAMETHASONE. [Concomitant]
     Active Substance: DEXAMETHASONE
     Indication: PROPHYLAXIS
     Dosage: 4 MG, TWICE DAILY
     Route: 048
     Dates: start: 20160820, end: 20160820
  4. DEXAMETHASONE. [Concomitant]
     Active Substance: DEXAMETHASONE
     Dosage: 4 MG, TWICE DAILY
     Route: 048
     Dates: start: 20161001, end: 20161001
  5. URANTAC [Concomitant]
     Dosage: 100 MG, ONCE
     Route: 042
     Dates: start: 20161021, end: 20161021
  6. ALIMTA [Concomitant]
     Active Substance: PEMETREXED DISODIUM
     Dosage: 860 MG, ONCE (CYCLE 2)
     Route: 042
     Dates: start: 20160909, end: 20160909
  7. CISPLAN [Concomitant]
     Active Substance: CISPLATIN
     Dosage: 103.2 MG, ONCE (CYCLE 4)
     Route: 042
     Dates: start: 20161021, end: 20161021
  8. DEXAMETHASONE SODIUM PHOSPHATE. [Concomitant]
     Active Substance: DEXAMETHASONE SODIUM PHOSPHATE
     Dosage: 10 MG, ONCE
     Route: 042
     Dates: start: 20160909, end: 20160909
  9. DEXAMETHASONE SODIUM PHOSPHATE. [Concomitant]
     Active Substance: DEXAMETHASONE SODIUM PHOSPHATE
     Dosage: 10 MG, ONCE
     Route: 042
     Dates: start: 20161021, end: 20161021
  10. ALOXI [Concomitant]
     Active Substance: PALONOSETRON HYDROCHLORIDE
     Dosage: 5 ML, ONCE
     Route: 042
     Dates: start: 20160909, end: 20160909
  11. LASIX [Concomitant]
     Active Substance: FUROSEMIDE
     Dosage: 20 MG, ONCE
     Route: 042
     Dates: start: 20160909, end: 20160909
  12. FOLSAN [Concomitant]
     Active Substance: FOLIC ACID
     Indication: PREMEDICATION
     Dosage: 1 MG, ONCE DAILY
     Route: 048
     Dates: start: 20160810
  13. ALOXI [Concomitant]
     Active Substance: PALONOSETRON HYDROCHLORIDE
     Dosage: 5 ML, ONCE
     Route: 042
     Dates: start: 20160930, end: 20160930
  14. ANYCOUGH [Concomitant]
     Active Substance: THEOBROMINE
     Indication: COUGH
     Dosage: 300 MG, TWICE DAILY
     Route: 048
     Dates: start: 20160810, end: 20161030
  15. EMEND (FOSAPREPITANT DIMEGLUMINE) [Suspect]
     Active Substance: FOSAPREPITANT DIMEGLUMINE
     Indication: PROPHYLAXIS OF NAUSEA AND VOMITING
     Dosage: 150 MG, ONCE
     Route: 042
     Dates: start: 20160819, end: 20160819
  16. EMEND (FOSAPREPITANT DIMEGLUMINE) [Suspect]
     Active Substance: FOSAPREPITANT DIMEGLUMINE
     Dosage: 150 MG, ONCE
     Route: 042
     Dates: start: 20160930, end: 20160930
  17. CISPLAN [Concomitant]
     Active Substance: CISPLATIN
     Dosage: 103.2 MG, ONCE (CYCLE 3)
     Route: 042
     Dates: start: 20160930, end: 20160930
  18. DEXAMETHASONE. [Concomitant]
     Active Substance: DEXAMETHASONE
     Dosage: 4 MG, TWICE DAILY
     Route: 048
     Dates: start: 20161022, end: 20161022
  19. ALOXI [Concomitant]
     Active Substance: PALONOSETRON HYDROCHLORIDE
     Indication: PROPHYLAXIS OF NAUSEA AND VOMITING
     Dosage: 5 ML, ONCE
     Route: 042
     Dates: start: 20160819, end: 20160819
  20. LASIX [Concomitant]
     Active Substance: FUROSEMIDE
     Indication: DRUG TOXICITY PROPHYLAXIS
     Dosage: 20 MG, ONCE
     Route: 042
     Dates: start: 20160819, end: 20160819
  21. URANTAC [Concomitant]
     Dosage: 100 MG, ONCE
     Route: 042
     Dates: start: 20160930, end: 20160930
  22. ALIMTA [Concomitant]
     Active Substance: PEMETREXED DISODIUM
     Indication: NON-SMALL CELL LUNG CANCER
     Dosage: 860 MG, ONCE (CYCLE 1)
     Route: 042
     Dates: start: 20160819, end: 20160819
  23. CISPLAN [Concomitant]
     Active Substance: CISPLATIN
     Indication: NON-SMALL CELL LUNG CANCER
     Dosage: 103.2 MG, ONCE (CYCLE 1)
     Route: 042
     Dates: start: 20160819, end: 20160819
  24. URANTAC [Concomitant]
     Dosage: 100 MG, ONCE
     Route: 042
     Dates: start: 20160909, end: 20160909
  25. EMEND (FOSAPREPITANT DIMEGLUMINE) [Suspect]
     Active Substance: FOSAPREPITANT DIMEGLUMINE
     Dosage: 150 MG, ONCE
     Route: 042
     Dates: start: 20160909, end: 20160909
  26. ALIMTA [Concomitant]
     Active Substance: PEMETREXED DISODIUM
     Dosage: 860 MG, ONCE (CYCLE 3)
     Route: 042
     Dates: start: 20160930, end: 20160930
  27. DEXAMETHASONE. [Concomitant]
     Active Substance: DEXAMETHASONE
     Dosage: 4 MG, TWICE DAILY
     Route: 048
     Dates: start: 20160910, end: 20160910
  28. ALOXI [Concomitant]
     Active Substance: PALONOSETRON HYDROCHLORIDE
     Dosage: 5 ML, ONCE
     Route: 042
     Dates: start: 20161021, end: 20161021
  29. LASIX [Concomitant]
     Active Substance: FUROSEMIDE
     Dosage: 20 MG, ONCE
     Route: 042
     Dates: start: 20161021, end: 20161021
  30. URANTAC [Concomitant]
     Indication: PROPHYLAXIS
     Dosage: 100 MG, ONCE
     Route: 042
     Dates: start: 20160819, end: 20160819
  31. STOGAR [Concomitant]
     Active Substance: LAFUTIDINE
     Indication: GASTRITIS PROPHYLAXIS
     Dosage: 10 MG, TWICE DAILY
     Route: 048
     Dates: start: 20160816
  32. DEXAMETHASONE SODIUM PHOSPHATE. [Concomitant]
     Active Substance: DEXAMETHASONE SODIUM PHOSPHATE
     Indication: PREMEDICATION
     Dosage: 10 MG, ONCE
     Route: 042
     Dates: start: 20160819, end: 20160819
  33. DEXAMETHASONE SODIUM PHOSPHATE. [Concomitant]
     Active Substance: DEXAMETHASONE SODIUM PHOSPHATE
     Dosage: 10 MG, ONCE
     Route: 042
     Dates: start: 20160930, end: 20160930
  34. CISPLAN [Concomitant]
     Active Substance: CISPLATIN
     Dosage: 103.2 MG, ONCE (CYCLE 2)
     Route: 042
     Dates: start: 20160909, end: 20160909
  35. LASIX [Concomitant]
     Active Substance: FUROSEMIDE
     Dosage: 20 MG, ONCE
     Route: 042
     Dates: start: 20160930, end: 20160930
  36. SURFOLASE [Concomitant]
     Indication: PRODUCTIVE COUGH
     Dosage: 100 MG, TWICE DAILY
     Route: 048
     Dates: start: 20160816
  37. PARAMACET [Concomitant]
     Active Substance: ACETAMINOPHEN\TRAMADOL
     Indication: CHEST DISCOMFORT
     Dosage: 2 TABLETS, TWICE DAILY
     Route: 048
     Dates: start: 20160816, end: 20160908

REACTIONS (5)
  - Neuralgia [Not Recovered/Not Resolved]
  - Musculoskeletal discomfort [Not Recovered/Not Resolved]
  - Pain in extremity [Recovered/Resolved]
  - Constipation [Not Recovered/Not Resolved]
  - Urinary retention [Recovered/Resolved]

NARRATIVE: CASE EVENT DATE: 20160830
